FAERS Safety Report 4428476-4 (Version None)
Quarter: 2004Q3

REPORT INFORMATION
  Report Type: 
  Country: None (occurrence: None)
  Receive Date: 20040816
  Receipt Date: 20040809
  Transmission Date: 20050211
  Serious: Yes (Hospitalization, Other)
  Sender: FDA-Public Use
  Company Number: KII-2004-0012888

PATIENT
  Age: 15 Year
  Sex: Female

DRUGS (5)
  1. MORPHINE SULFATE [Suspect]
     Indication: DRUG USE FOR UNKNOWN INDICATION
  2. COCAINE(COCAINE) [Suspect]
     Indication: DRUG USE FOR UNKNOWN INDICATION
  3. ETHANOL(ETHANOL) [Suspect]
     Indication: DRUG USE FOR UNKNOWN INDICATION
  4. HEROIN(DIAMORPHINE) [Suspect]
     Indication: DRUG USE FOR UNKNOWN INDICATION
  5. MARIJUANA(CANNABIS) [Suspect]
     Indication: DRUG USE FOR UNKNOWN INDICATION

REACTIONS (29)
  - ALANINE AMINOTRANSFERASE INCREASED [None]
  - ANOXIC ENCEPHALOPATHY [None]
  - ASPARTATE AMINOTRANSFERASE INCREASED [None]
  - BLOOD BICARBONATE DECREASED [None]
  - BLOOD CALCIUM DECREASED [None]
  - BLOOD CREATINE PHOSPHOKINASE INCREASED [None]
  - COMA [None]
  - COUGH [None]
  - ELECTROENCEPHALOGRAM ABNORMAL [None]
  - FIBRIN D DIMER INCREASED [None]
  - HAEMOGLOBIN DECREASED [None]
  - HYPERPYREXIA [None]
  - HYPERTENSION [None]
  - HYPOKINESIA [None]
  - HYPOREFLEXIA [None]
  - HYPOTHERMIA [None]
  - LEUKOENCEPHALOPATHY [None]
  - MOVEMENT DISORDER [None]
  - MULTIPLE DRUG OVERDOSE [None]
  - MUSCLE RIGIDITY [None]
  - PCO2 DECREASED [None]
  - POSTURING [None]
  - PROCEDURAL COMPLICATION [None]
  - PROTEIN TOTAL DECREASED [None]
  - PROTHROMBIN TIME PROLONGED [None]
  - RESPIRATORY RATE INCREASED [None]
  - SEROTONIN SYNDROME [None]
  - TACHYCARDIA [None]
  - WHITE BLOOD CELL COUNT INCREASED [None]
